FAERS Safety Report 19266489 (Version 1)
Quarter: 2021Q2

REPORT INFORMATION
  Report Type: Spontaneous
  Country: GB (occurrence: GB)
  Receive Date: 20210518
  Receipt Date: 20210518
  Transmission Date: 20210717
  Serious: Yes (Other)
  Sender: FDA-Public Use
  Company Number: GB-SUN PHARMACEUTICAL INDUSTRIES LTD-2021RR-296590

PATIENT
  Age: 57 Year
  Sex: Female

DRUGS (2)
  1. PEMETREXED. [Suspect]
     Active Substance: PEMETREXED
     Indication: SARCOMATOID CARCINOMA OF THE LUNG
     Dosage: UNK
     Route: 065
     Dates: start: 201909
  2. CARBOPLATIN. [Suspect]
     Active Substance: CARBOPLATIN
     Indication: SARCOMATOID CARCINOMA OF THE LUNG
     Dosage: UNK
     Route: 065
     Dates: start: 201909

REACTIONS (3)
  - Disease progression [Unknown]
  - Anaemia [Unknown]
  - Colitis [Unknown]
